FAERS Safety Report 25084940 (Version 3)
Quarter: 2025Q2

REPORT INFORMATION
  Report Type: Report from Study
  Country: JP (occurrence: JP)
  Receive Date: 20250317
  Receipt Date: 20250508
  Transmission Date: 20250716
  Serious: Yes (Other)
  Sender: NOVARTIS
  Company Number: JP-002147023-NVSJ2024JP015104

PATIENT
  Age: 15 Year
  Sex: Female

DRUGS (3)
  1. MEKINIST [Suspect]
     Active Substance: TRAMETINIB DIMETHYL SULFOXIDE
     Indication: Astrocytoma
     Route: 048
     Dates: start: 20241205
  2. MEKINIST [Suspect]
     Active Substance: TRAMETINIB DIMETHYL SULFOXIDE
     Indication: BRAF gene mutation
     Route: 048
     Dates: start: 20250213
  3. Heparinoid [Concomitant]
     Indication: Dry skin
     Route: 003
     Dates: start: 20241126

REACTIONS (8)
  - Dermatitis acneiform [Recovering/Resolving]
  - Proteinuria [Recovered/Resolved]
  - Urticaria [Recovered/Resolved]
  - Amylase increased [Recovered/Resolved]
  - Neutrophil count decreased [Not Recovered/Not Resolved]
  - Aspartate aminotransferase increased [Recovered/Resolved]
  - Stomatitis [Not Recovered/Not Resolved]
  - Alanine aminotransferase increased [Recovered/Resolved]

NARRATIVE: CASE EVENT DATE: 20241212
